FAERS Safety Report 18512527 (Version 1)
Quarter: 2020Q4

REPORT INFORMATION
  Report Type: Spontaneous
  Country: GB (occurrence: GB)
  Receive Date: 20201117
  Receipt Date: 20201117
  Transmission Date: 20210114
  Serious: Yes (Other)
  Sender: FDA-Public Use
  Company Number: GB-TEVA-2020-GB-1848869

PATIENT
  Age: 1 Year
  Sex: Female
  Weight: 11 kg

DRUGS (4)
  1. MONTELUKAST [Suspect]
     Active Substance: MONTELUKAST SODIUM
     Dosage: 4MG
     Route: 065
     Dates: start: 20201017
  2. LANSOPRAZOLE. [Concomitant]
     Active Substance: LANSOPRAZOLE
     Dosage: 5.7MG
     Dates: start: 20191230
  3. SODIUM FEREDETATE [Concomitant]
     Active Substance: SODIUM FEREDETATE
     Dosage: 1 ML DAILY; IN THE MORNING
     Dates: start: 20191230
  4. ABIDEC [Concomitant]
     Dosage: .6 ML DAILY; IN THE MORNING, 0.6ML
     Dates: start: 20191230

REACTIONS (1)
  - Sleep terror [Recovering/Resolving]

NARRATIVE: CASE EVENT DATE: 20201017
